FAERS Safety Report 6949519-X (Version None)
Quarter: 2010Q3

REPORT INFORMATION
  Report Type: 
  Country: None (occurrence: None)
  Receive Date: 20100828
  Receipt Date: 20091228
  Transmission Date: 20110219
  Serious: No
  Sender: FDA-Public Use
  Company Number: US-ABBOTT-10P-163-0617238-00

PATIENT
  Sex: Female
  Weight: 64.468 kg

DRUGS (6)
  1. NIASPAN [Suspect]
     Indication: BLOOD CHOLESTEROL INCREASED
     Route: 048
     Dates: start: 20091212, end: 20091226
  2. COUMADIN [Concomitant]
     Indication: ATRIAL FIBRILLATION
     Dosage: PER PT/INR'S
     Route: 048
  3. COZAAR [Concomitant]
     Indication: HYPERTENSION
     Route: 048
  4. PACERONE [Concomitant]
     Indication: CARDIAC DISORDER
     Route: 048
  5. TOPROL-XL [Concomitant]
     Indication: CARDIAC DISORDER
     Route: 048
  6. OMEPRAZOLE [Concomitant]
     Indication: GASTROOESOPHAGEAL REFLUX DISEASE
     Route: 048
     Dates: start: 20091212

REACTIONS (3)
  - GENERALISED ERYTHEMA [None]
  - PARAESTHESIA [None]
  - RASH MACULAR [None]
